FAERS Safety Report 4697896-5 (Version None)
Quarter: 2005Q2

REPORT INFORMATION
  Report Type: 
  Country: None (occurrence: None)
  Receive Date: 20050621
  Receipt Date: 20050621
  Transmission Date: 20051028
  Serious: Yes (Other)
  Sender: FDA-Public Use
  Company Number: None

PATIENT
  Sex: Male
  Weight: 77 kg

DRUGS (4)
  1. ARSENIC TRIOXIDE [Suspect]
     Indication: ACUTE PROMYELOCYTIC LEUKAEMIA
     Dates: start: 20050506
  2. ALL-TRANS RETINOIC ACID [Suspect]
     Dosage: 22.5 MG/M2 PO BID Q12HR STARTING ON DAY 1, FOR A MAXIMUM OF 90 DAYS.
  3. DAUNOMYCIN [Suspect]
     Dosage: 50 MG/M2 IV BOLUS OVER 5-10 MIN QD ON DAYS 3-6
     Route: 040
  4. CYTARABINE [Suspect]
     Dosage: 200 MG/M2/DAY CIV OVER 7 DAYS ON DAY 3
     Route: 042

REACTIONS (1)
  - HYPERTRIGLYCERIDAEMIA [None]
